FAERS Safety Report 23586428 (Version 1)
Quarter: 2024Q1

REPORT INFORMATION
  Report Type: Spontaneous
  Country: TR (occurrence: TR)
  Receive Date: 20240301
  Receipt Date: 20240301
  Transmission Date: 20240410
  Serious: Yes (Other)
  Sender: FDA-Public Use
  Company Number: TR-002147023-NVSC2024TR044007

PATIENT
  Age: 36 Year
  Sex: Male

DRUGS (1)
  1. TRILEPTAL [Suspect]
     Active Substance: OXCARBAZEPINE
     Indication: Brain neoplasm
     Dosage: UNK (FOR 20 YEARS)
     Route: 065

REACTIONS (5)
  - Seizure [Unknown]
  - Impaired work ability [Unknown]
  - Asocial behaviour [Unknown]
  - Product supply issue [Unknown]
  - Off label use [Unknown]
